FAERS Safety Report 5678979-X (Version None)
Quarter: 2008Q1

REPORT INFORMATION
  Report Type: 
  Country: None (occurrence: None)
  Receive Date: 20080321
  Receipt Date: 20080306
  Transmission Date: 20080703
  Serious: Yes (Hospitalization)
  Sender: FDA-Public Use
  Company Number: 2008SP000530

PATIENT
  Age: 69 Year
  Sex: Female
  Weight: 88.905 kg

DRUGS (19)
  1. BROVANA [Suspect]
     Indication: ASTHMA
     Dosage: 15 UG/2ML;BID;INHALATION
     Route: 055
     Dates: start: 20080101, end: 20080201
  2. BROVANA [Suspect]
     Indication: CHRONIC OBSTRUCTIVE PULMONARY DISEASE
     Dosage: 15 UG/2ML;BID;INHALATION
     Route: 055
     Dates: start: 20080101, end: 20080201
  3. BROVANA [Suspect]
     Indication: ASTHMA
     Dosage: 15 UG/2ML;BID;INHALATION
     Route: 055
     Dates: start: 20080201
  4. BROVANA [Suspect]
     Indication: CHRONIC OBSTRUCTIVE PULMONARY DISEASE
     Dosage: 15 UG/2ML;BID;INHALATION
     Route: 055
     Dates: start: 20080201
  5. PRILOSEC [Concomitant]
  6. PYRIDOSTIGMINE BROMIDE [Concomitant]
  7. PREDNISONE [Concomitant]
  8. LISINOPRIL [Concomitant]
  9. NEURONTIN [Concomitant]
  10. DILANTIN [Concomitant]
  11. VERAPAMIL [Concomitant]
  12. CELEXA [Concomitant]
  13. SOMA [Concomitant]
  14. ZOCOR [Concomitant]
  15. LEVOTHYROXINE SODIUM [Concomitant]
  16. CLONOPIN [Concomitant]
  17. CYANOCOBALAMIN [Concomitant]
  18. DUONEB [Concomitant]
  19. OXYGEN [Concomitant]

REACTIONS (4)
  - ASTHMA [None]
  - CHEST DISCOMFORT [None]
  - DYSPNOEA [None]
  - PALPITATIONS [None]
